FAERS Safety Report 23588048 (Version 2)
Quarter: 2024Q3

REPORT INFORMATION
  Report Type: Spontaneous
  Country: US (occurrence: US)
  Receive Date: 20240301
  Receipt Date: 20240917
  Transmission Date: 20241017
  Serious: No
  Sender: SANOFI AVENTIS
  Company Number: US-SA-SAC20240228000004

PATIENT
  Age: 63 Year
  Sex: Female

DRUGS (8)
  1. DUPIXENT [Suspect]
     Active Substance: DUPILUMAB
     Indication: Dermatitis atopic
     Dosage: 300 MG, QOW
     Route: 058
     Dates: start: 20240117
  2. OZEMPIC [Concomitant]
     Active Substance: SEMAGLUTIDE
     Dosage: (0.2 SOP 2MG/3ML
  3. VASCAZEN [Concomitant]
  4. GABAPENTIN [Concomitant]
     Active Substance: GABAPENTIN
  5. DILTIAZEM HYDROCHLORIDE [Concomitant]
     Active Substance: DILTIAZEM HYDROCHLORIDE
  6. TRIAMCINOLONE ACETONIDE [Concomitant]
     Active Substance: TRIAMCINOLONE ACETONIDE
  7. HYDROCODONE [Concomitant]
     Active Substance: HYDROCODONE
  8. CLONIDINE HYDROCHLORIDE [Concomitant]
     Active Substance: CLONIDINE HYDROCHLORIDE

REACTIONS (4)
  - Flatulence [Not Recovered/Not Resolved]
  - Non-alcoholic fatty liver [Not Recovered/Not Resolved]
  - Decreased appetite [Unknown]
  - Depressed mood [Unknown]

NARRATIVE: CASE EVENT DATE: 20240101
